FAERS Safety Report 9054501 (Version 1)
Quarter: 2013Q1

REPORT INFORMATION
  Report Type: Spontaneous
  Country: US (occurrence: US)
  Receive Date: 20130208
  Receipt Date: 20130208
  Transmission Date: 20140127
  Serious: No
  Sender: FDA-Public Use
  Company Number: US-GLAXOSMITHKLINE-A0996273A

PATIENT
  Age: 51 Year
  Sex: Male

DRUGS (2)
  1. PAROXETINE [Suspect]
     Indication: ANXIETY
     Dosage: 20MG PER DAY
     Dates: start: 201101
  2. BLOOD PRESSURE MEDICINES [Concomitant]

REACTIONS (1)
  - Vision blurred [Not Recovered/Not Resolved]
